FAERS Safety Report 9637119 (Version 1)
Quarter: 2013Q4

REPORT INFORMATION
  Report Type: Spontaneous
  Country: US (occurrence: US)
  Receive Date: 20131022
  Receipt Date: 20131022
  Transmission Date: 20140711
  Serious: Yes (Hospitalization, Other)
  Sender: FDA-Public Use
  Company Number: US-JNJFOC-20131005536

PATIENT
  Age: 40 Year
  Sex: Female

DRUGS (2)
  1. ACETAMINOPHEN [Suspect]
     Route: 048
  2. ACETAMINOPHEN [Suspect]
     Indication: OFF LABEL USE
     Route: 048

REACTIONS (8)
  - Haemolysis [Unknown]
  - Mental status changes [Unknown]
  - Blood bilirubin increased [Unknown]
  - Overdose [Unknown]
  - Metabolic acidosis [Unknown]
  - Vomiting [Unknown]
  - Tachycardia [Unknown]
  - Drug screen positive [Unknown]
